FAERS Safety Report 15686809 (Version 1)
Quarter: 2018Q4

REPORT INFORMATION
  Report Type: Spontaneous
  Country: US (occurrence: US)
  Receive Date: 20181204
  Receipt Date: 20181204
  Transmission Date: 20190205
  Serious: No
  Sender: FDA-Public Use
  Company Number: US-009507513-1811USA012658

PATIENT
  Age: 17 Year
  Sex: Female

DRUGS (2)
  1. SOMATROPIN. [Concomitant]
     Active Substance: SOMATROPIN
     Indication: GROWTH HORMONE DEFICIENCY
     Dosage: 0.3 MILLIGRAM, QD
  2. PRINIVIL [Suspect]
     Active Substance: LISINOPRIL
     Indication: MICROALBUMINURIA
     Dosage: 5 MILLIGRAM, QD
     Route: 048

REACTIONS (1)
  - Product use in unapproved indication [Unknown]
